FAERS Safety Report 20831464 (Version 1)
Quarter: 2022Q2

REPORT INFORMATION
  Report Type: Spontaneous
  Country: US (occurrence: US)
  Receive Date: 20220516
  Receipt Date: 20220516
  Transmission Date: 20220721
  Serious: Yes (Other)
  Sender: FDA-Public Use
  Company Number: US-SA-SAC20220506001912

PATIENT
  Age: 54 Year
  Sex: Male

DRUGS (1)
  1. ZANTAC [Suspect]
     Active Substance: RANITIDINE HYDROCHLORIDE
     Dosage: UNK,QD
     Dates: start: 201301, end: 201512

REACTIONS (1)
  - Prostate cancer stage II [Recovered/Resolved]

NARRATIVE: CASE EVENT DATE: 20200101
